FAERS Safety Report 25643734 (Version 4)
Quarter: 2025Q3

REPORT INFORMATION
  Report Type: Report from Study
  Country: EU (occurrence: EU)
  Receive Date: 20250805
  Receipt Date: 20250812
  Transmission Date: 20251020
  Serious: Yes (Hospitalization)
  Sender: ABBVIE
  Company Number: EU-ABBVIE-6397200

PATIENT
  Age: 74 Year
  Sex: Female

DRUGS (2)
  1. FOSCARBIDOPA\FOSLEVODOPA [Suspect]
     Active Substance: FOSCARBIDOPA\FOSLEVODOPA
     Indication: Parkinson^s disease
     Route: 058
     Dates: start: 20250429
  2. FOSCARBIDOPA\FOSLEVODOPA [Suspect]
     Active Substance: FOSCARBIDOPA\FOSLEVODOPA
     Route: 058

REACTIONS (4)
  - Pain [Recovered/Resolved]
  - Hypokinesia [Recovering/Resolving]
  - Patient dissatisfaction with device [Unknown]
  - Akinesia [Unknown]

NARRATIVE: CASE EVENT DATE: 20250101
